FAERS Safety Report 9270698 (Version 3)
Quarter: 2013Q2

REPORT INFORMATION
  Report Type: Spontaneous
  Country: JP (occurrence: JP)
  Receive Date: 20130503
  Receipt Date: 20130620
  Transmission Date: 20140414
  Serious: Yes (Life-Threatening)
  Sender: FDA-Public Use
  Company Number: JP-BAXTER-2013BAX015963

PATIENT
  Age: 70 Year
  Sex: Female

DRUGS (12)
  1. ZOLEDRONIC ACID HYDRATE [Concomitant]
     Indication: PRODUCT USED FOR UNKNOWN INDICATION
     Route: 065
     Dates: start: 20121228
  2. DOCETAXEL [Concomitant]
     Indication: PRODUCT USED FOR UNKNOWN INDICATION
     Dosage: 100% DOSE
     Route: 065
     Dates: start: 20130109, end: 20130315
  3. ANASTROZOLE [Concomitant]
     Indication: PRODUCT USED FOR UNKNOWN INDICATION
     Route: 065
     Dates: start: 20130420
  4. ENDOXAN 1G [Suspect]
     Indication: BREAST CANCER
     Route: 041
     Dates: start: 20130405, end: 20130405
  5. ENDOXAN 1G [Suspect]
     Route: 041
     Dates: end: 20130420
  6. EPIRUBICIN HYDROCHLORIDE [Suspect]
     Indication: BREAST CANCER
     Route: 041
     Dates: start: 20130405, end: 20130405
  7. EPIRUBICIN HYDROCHLORIDE [Suspect]
     Route: 041
     Dates: end: 20130420
  8. FLUOROURACIL [Suspect]
     Indication: BREAST CANCER
     Route: 041
     Dates: start: 20130405, end: 20130405
  9. FLUOROURACIL [Suspect]
     Route: 041
     Dates: end: 20130420
  10. ALOXI [Concomitant]
     Indication: PRODUCT USED FOR UNKNOWN INDICATION
     Route: 065
  11. DEXART [Concomitant]
     Indication: PRODUCT USED FOR UNKNOWN INDICATION
     Route: 065
  12. APREPITANT [Concomitant]
     Indication: PRODUCT USED FOR UNKNOWN INDICATION
     Route: 065

REACTIONS (1)
  - Musculoskeletal stiffness [Recovered/Resolved]
